FAERS Safety Report 11022791 (Version 2)
Quarter: 2015Q2

REPORT INFORMATION
  Report Type: Spontaneous
  Country: IE (occurrence: IE)
  Receive Date: 20150413
  Receipt Date: 20150511
  Transmission Date: 20150821
  Serious: Yes (Other)
  Sender: FDA-Public Use
  Company Number: IE-MUNDIPHARMA DS AND PHARMACOVIGILANCE-GBR-2014-0024706

PATIENT
  Sex: Female

DRUGS (9)
  1. OXYNORM CAPSULES [Suspect]
     Active Substance: OXYCODONE HYDROCHLORIDE
     Dosage: 20 MG
     Route: 048
     Dates: start: 201010
  2. OXYNORM CAPSULES [Suspect]
     Active Substance: OXYCODONE HYDROCHLORIDE
     Dosage: 15 MG, Q4- 6H
     Route: 048
     Dates: start: 201008, end: 201010
  3. PROZAC [Suspect]
     Active Substance: FLUOXETINE HYDROCHLORIDE
     Indication: DEPRESSED MOOD
     Route: 065
  4. OXYNORM CAPSULES [Suspect]
     Active Substance: OXYCODONE HYDROCHLORIDE
     Indication: ARTHRALGIA
     Dosage: 1 MG
     Route: 048
  5. OXYNORM LIQUID [Suspect]
     Active Substance: OXYCODONE HYDROCHLORIDE
     Indication: PRODUCT USED FOR UNKNOWN INDICATION
     Dosage: UNK
     Route: 048
     Dates: end: 201402
  6. OXYNORM CAPSULES [Suspect]
     Active Substance: OXYCODONE HYDROCHLORIDE
     Dosage: 30 MG, Q4- 6H
     Route: 048
  7. OXYNORM CAPSULES [Suspect]
     Active Substance: OXYCODONE HYDROCHLORIDE
     Dosage: 5MG
     Route: 048
     Dates: start: 200912, end: 201006
  8. OXYNORM CAPSULES [Suspect]
     Active Substance: OXYCODONE HYDROCHLORIDE
     Dosage: 30 MG, Q3- 4H
     Route: 048
     Dates: start: 201301, end: 201402
  9. OXYNORM CAPSULES [Suspect]
     Active Substance: OXYCODONE HYDROCHLORIDE
     Dosage: 10 MG,
     Route: 048
     Dates: start: 201006, end: 201008

REACTIONS (5)
  - Skin odour abnormal [Recovering/Resolving]
  - Hallucination, auditory [Recovering/Resolving]
  - Drug dependence [Recovering/Resolving]
  - Drug withdrawal syndrome [Recovering/Resolving]
  - Weight increased [Unknown]

NARRATIVE: CASE EVENT DATE: 201502
